FAERS Safety Report 6511833-X (Version None)
Quarter: 2009Q4

REPORT INFORMATION
  Report Type: 
  Country: None (occurrence: None)
  Receive Date: 20091222
  Receipt Date: 20091210
  Transmission Date: 20100525
  Serious: Yes (Other)
  Sender: FDA-Public Use
  Company Number: PHHY2009DE49909

PATIENT
  Sex: Female
  Weight: 60 kg

DRUGS (1)
  1. EXTAVIA [Suspect]
     Indication: MULTIPLE SCLEROSIS
     Dosage: 1 ML DAILY
     Route: 058
     Dates: start: 20091029

REACTIONS (7)
  - ACNE [None]
  - CHILLS [None]
  - HYPERHIDROSIS [None]
  - INCREASED APPETITE [None]
  - INFLUENZA LIKE ILLNESS [None]
  - OROPHARYNGEAL PAIN [None]
  - WEIGHT INCREASED [None]
